FAERS Safety Report 9350503 (Version 1)
Quarter: 2013Q2

REPORT INFORMATION
  Report Type: Spontaneous
  Country: US (occurrence: None)
  Receive Date: 20130613
  Receipt Date: 20130613
  Transmission Date: 20140414
  Serious: No
  Sender: FDA-Public Use
  Company Number: None

PATIENT
  Age: 29 Year
  Sex: Female

DRUGS (2)
  1. PEGASYS PROCLICK [Suspect]
     Indication: CHRONIC HEPATITIS C
     Dosage: 180MCG ONCE A WEEK SUBCUTANEOUS
     Route: 058
     Dates: start: 20130807
  2. RIBAVIRIN 200MG AUROBINDO [Suspect]
     Indication: CHRONIC HEPATITIS C
     Dosage: 600MG TWICE A DAY BY MOUTH
     Route: 048
     Dates: start: 20130808

REACTIONS (4)
  - Abdominal pain [None]
  - Anal pruritus [None]
  - Anorectal discomfort [None]
  - Aphthous stomatitis [None]
